FAERS Safety Report 9380044 (Version 1)
Quarter: 2013Q2

REPORT INFORMATION
  Report Type: Spontaneous
  Country: FR (occurrence: None)
  Receive Date: 20130628
  Receipt Date: 20130628
  Transmission Date: 20140414
  Serious: Yes (Hospitalization)
  Sender: FDA-Public Use
  Company Number: AXC-2013-000278

PATIENT
  Age: 36 Year
  Sex: Female

DRUGS (8)
  1. PYLERA [Suspect]
     Indication: HELICOBACTER GASTRITIS
     Route: 048
     Dates: start: 20130422, end: 20130501
  2. KETOPROFEN [Suspect]
     Indication: NECK PAIN
     Dates: start: 20130520, end: 20130525
  3. URBANYL [Concomitant]
  4. KLIPAL /00116401/ (CODEINE PHOSPHATE, PARACETAMOL) [Concomitant]
  5. ALPROZOLAM [Concomitant]
  6. PANTOPRAZOLE [Concomitant]
  7. ZOLPIDEM [Concomitant]
  8. AMITRIPTYLINE HYDROCHLORIDE [Concomitant]

REACTIONS (5)
  - Colitis [None]
  - Loss of consciousness [None]
  - Vertigo [None]
  - Malaise [None]
  - Neck pain [None]
